FAERS Safety Report 9677948 (Version 1)
Quarter: 2013Q4

REPORT INFORMATION
  Report Type: Spontaneous
  Country: JP (occurrence: JP)
  Receive Date: 20131108
  Receipt Date: 20131108
  Transmission Date: 20140711
  Serious: Yes (Other)
  Sender: FDA-Public Use
  Company Number: JP-ASTRAZENECA-2013SE80194

PATIENT
  Age: 74 Year
  Sex: Female

DRUGS (1)
  1. XYLOCAINE [Suspect]
     Indication: LOCAL ANAESTHESIA
     Route: 053

REACTIONS (5)
  - Loss of consciousness [Recovered/Resolved]
  - Pallor [Unknown]
  - Respiratory arrest [Recovered/Resolved]
  - Cyanosis [Unknown]
  - Ventricular tachycardia [Recovered/Resolved]
